FAERS Safety Report 8276563-5 (Version None)
Quarter: 2012Q2

REPORT INFORMATION
  Report Type: 
  Country: None (occurrence: None)
  Receive Date: 20120412
  Receipt Date: 20120409
  Transmission Date: 20120825
  Serious: No
  Sender: FDA-Public Use
  Company Number: US-BAYER-2012-035170

PATIENT
  Age: 48 Year
  Sex: Female

DRUGS (3)
  1. ALEVE (CAPLET) [Suspect]
     Indication: ARTHRITIS
  2. INSULIN [Concomitant]
  3. ANTIHYPERTENSIVES [Concomitant]

REACTIONS (1)
  - NO ADVERSE EVENT [None]
